FAERS Safety Report 7014045-9 (Version None)
Quarter: 2010Q3

REPORT INFORMATION
  Report Type: 
  Country: None (occurrence: None)
  Receive Date: 20100927
  Receipt Date: 20100916
  Transmission Date: 20110219
  Serious: Yes (Hospitalization)
  Sender: FDA-Public Use
  Company Number: US-BIOGENIDEC-2005BI010709

PATIENT
  Age: 42 Year
  Sex: Female

DRUGS (2)
  1. AVONEX [Suspect]
     Indication: MULTIPLE SCLEROSIS
     Route: 030
     Dates: start: 19960901, end: 20030901
  2. AVONEX [Suspect]
     Route: 030
     Dates: start: 20030901

REACTIONS (3)
  - CHLAMYDIAL INFECTION [None]
  - INTERVERTEBRAL DISC DISORDER [None]
  - PAPILLOMA VIRAL INFECTION [None]
